FAERS Safety Report 19680885 (Version 1)
Quarter: 2021Q3

REPORT INFORMATION
  Report Type: Spontaneous
  Country: AT (occurrence: AT)
  Receive Date: 20210810
  Receipt Date: 20210810
  Transmission Date: 20211014
  Serious: Yes (Other)
  Sender: FDA-Public Use
  Company Number: AT-SA-2021SA257358

PATIENT
  Age: 50 Year
  Sex: Female

DRUGS (1)
  1. LOVENOX [Suspect]
     Active Substance: ENOXAPARIN SODIUM
     Dosage: ACCORDING TO SPECIALIST INFORMATION
     Route: 058
     Dates: start: 20210301, end: 20210304

REACTIONS (2)
  - Type IV hypersensitivity reaction [Recovered/Resolved]
  - Rash macular [Recovered/Resolved]

NARRATIVE: CASE EVENT DATE: 20210304
